FAERS Safety Report 9675913 (Version 1)
Quarter: 2013Q4

REPORT INFORMATION
  Report Type: Spontaneous
  Country: US (occurrence: US)
  Receive Date: 20131107
  Receipt Date: 20131107
  Transmission Date: 20140711
  Serious: No
  Sender: FDA-Public Use
  Company Number: US-009507513-1311USA002183

PATIENT
  Sex: Male

DRUGS (3)
  1. CORICIDIN HBP COUGH AND COLD [Suspect]
     Indication: PRODUCT USED FOR UNKNOWN INDICATION
     Dosage: UNK, ONCE
     Route: 048
     Dates: start: 20131028
  2. CORICIDIN HBP COUGH AND COLD [Suspect]
     Dosage: UNK, ONCE
     Route: 048
     Dates: start: 20131027
  3. CORICIDIN HBP COUGH AND COLD [Suspect]
     Dosage: UNK, UNKNOWN
     Route: 048
     Dates: start: 201310

REACTIONS (3)
  - Dyspnoea [Unknown]
  - Asthenia [Unknown]
  - Hyperhidrosis [Unknown]
